FAERS Safety Report 7496944-7 (Version None)
Quarter: 2011Q2

REPORT INFORMATION
  Report Type: 
  Country: None (occurrence: None)
  Receive Date: 20110523
  Receipt Date: 20110510
  Transmission Date: 20111010
  Serious: Yes (Hospitalization, Other)
  Sender: FDA-Public Use
  Company Number: US-MERCK-1010USA01923

PATIENT
  Age: 64 Year
  Sex: Female

DRUGS (4)
  1. VITAMINS (UNSPECIFIED) [Concomitant]
     Route: 065
     Dates: start: 19610101
  2. FOSAMAX [Suspect]
     Indication: BONE LOSS
     Route: 048
     Dates: start: 20020101, end: 20090212
  3. CALCIUM (UNSPECIFIED) [Concomitant]
     Route: 048
     Dates: start: 19990101
  4. VITAMIN D (UNSPECIFIED) [Concomitant]
     Route: 048
     Dates: start: 19990101

REACTIONS (24)
  - MORTON'S NEUROMA [None]
  - URINARY INCONTINENCE [None]
  - CATARACT [None]
  - PERIODONTAL DISEASE [None]
  - URINARY RETENTION [None]
  - ABDOMINAL PAIN UPPER [None]
  - FEMUR FRACTURE [None]
  - FRACTURE NONUNION [None]
  - ARTHROPATHY [None]
  - SCAPULA FRACTURE [None]
  - UMBILICAL HERNIA [None]
  - CONTUSION [None]
  - ARTHRALGIA [None]
  - COLITIS ISCHAEMIC [None]
  - IMPAIRED HEALING [None]
  - ATRIOVENTRICULAR BLOCK FIRST DEGREE [None]
  - LOSS OF CONSCIOUSNESS [None]
  - GINGIVAL DISORDER [None]
  - GALLBLADDER DISORDER [None]
  - BACK PAIN [None]
  - LEIOMYOMA [None]
  - FALL [None]
  - ANAEMIA [None]
  - TOOTH DISORDER [None]
